FAERS Safety Report 8229318 (Version 2)
Quarter: 2013Q3

REPORT INFORMATION
  Report Type: Report from Study
  Country: CZ (occurrence: CZ)
  Receive Date: 20111104
  Receipt Date: 20130730
  Transmission Date: 20140515
  Serious: Yes (Hospitalization, Other)
  Sender: FDA-Public Use
  Company Number: CZ-ASTRAZENECA-2011SE19589

PATIENT
  Age: 23967 Day
  Sex: Female

DRUGS (15)
  1. ANOPYRIN [Suspect]
     Indication: CORONARY ARTERY DISEASE
     Route: 048
     Dates: end: 20110404
  2. ANOPYRIN [Suspect]
     Indication: CORONARY ARTERY DISEASE
     Route: 048
     Dates: start: 20120201
  3. AZD6140 [Suspect]
     Indication: CORONARY ARTERY DISEASE
     Route: 048
     Dates: start: 20110329, end: 20110404
  4. VEROSPIRON [Concomitant]
     Indication: CARDIAC FAILURE CONGESTIVE
     Route: 048
  5. LANTUS [Concomitant]
     Indication: TYPE 2 DIABETES MELLITUS
     Route: 058
  6. GLUCOPHAGE [Concomitant]
     Indication: TYPE 2 DIABETES MELLITUS
     Route: 048
     Dates: end: 20110415
  7. FURON [Concomitant]
     Indication: CARDIAC FAILURE CONGESTIVE
     Route: 048
     Dates: end: 20120301
  8. CONCOR COR [Concomitant]
     Indication: CORONARY ARTERY DISEASE
     Route: 048
  9. CONCOR COR [Concomitant]
     Indication: CARDIAC FAILURE CONGESTIVE
     Route: 048
  10. CONCOR COR [Concomitant]
     Indication: HYPERTENSION
     Route: 048
  11. TORVACARD [Concomitant]
     Indication: HYPERCHOLESTEROLAEMIA
     Route: 048
     Dates: end: 20120301
  12. TORVACARD [Concomitant]
     Indication: CORONARY ARTERY DISEASE
     Route: 048
     Dates: end: 20120301
  13. TORVACARD [Concomitant]
     Indication: HYPERCHOLESTEROLAEMIA
     Route: 048
     Dates: start: 20120926
  14. TORVACARD [Concomitant]
     Indication: CORONARY ARTERY DISEASE
     Route: 048
     Dates: start: 20120926
  15. HUMALOG [Concomitant]
     Indication: TYPE 2 DIABETES MELLITUS
     Route: 058

REACTIONS (1)
  - Rectal cancer [Not Recovered/Not Resolved]
